FAERS Safety Report 18463284 (Version 1)
Quarter: 2020Q4

REPORT INFORMATION
  Report Type: Other
  Country: US (occurrence: US)
  Receive Date: 20201104
  Receipt Date: 20201104
  Transmission Date: 20210114
  Serious: Yes (Life-Threatening)
  Sender: FDA-Public Use
  Company Number: US-RIGHT VALUE DRUG STORES, LLC-2093593

PATIENT
  Age: 64 Year
  Sex: Female
  Weight: 64.55 kg

DRUGS (2)
  1. TESTOSTERONE 100 MG PEL [Suspect]
     Active Substance: TESTOSTERONE
     Route: 058
     Dates: start: 20150211, end: 20200608
  2. ESTRADIOL. [Suspect]
     Active Substance: ESTRADIOL
     Route: 058
     Dates: start: 20150211, end: 20200608

REACTIONS (1)
  - Invasive ductal breast carcinoma [Unknown]

NARRATIVE: CASE EVENT DATE: 20201019
